FAERS Safety Report 25126149 (Version 1)
Quarter: 2025Q1

REPORT INFORMATION
  Report Type: Report from Study
  Country: US (occurrence: US)
  Receive Date: 20250326
  Receipt Date: 20250326
  Transmission Date: 20250409
  Serious: Yes (Other)
  Sender: ABBVIE
  Company Number: US-ABBVIE-6194745

PATIENT
  Age: 23 Year
  Sex: Female

DRUGS (1)
  1. RINVOQ [Suspect]
     Active Substance: UPADACITINIB
     Indication: Crohn^s disease
     Route: 048
     Dates: start: 20240515

REACTIONS (3)
  - Crohn^s disease [Recovering/Resolving]
  - Vasculitis [Recovering/Resolving]
  - Ileostomy [Recovering/Resolving]

NARRATIVE: CASE EVENT DATE: 20241101
